FAERS Safety Report 14976890 (Version 1)
Quarter: 2018Q2

REPORT INFORMATION
  Report Type: Report from Study
  Country: ES (occurrence: ES)
  Receive Date: 20180605
  Receipt Date: 20180605
  Transmission Date: 20180711
  Serious: Yes (Hospitalization)
  Sender: FDA-Public Use
  Company Number: ES-TEVA-2018-ES-902110

PATIENT
  Age: 81 Year
  Sex: Male

DRUGS (6)
  1. PRISTIQ EXTENDED-RELEASE [Suspect]
     Active Substance: DESVENLAFAXINE SUCCINATE
     Route: 048
     Dates: start: 20170415
  2. RIVASTIGMINA (1075A) [Suspect]
     Active Substance: RIVASTIGMINE
     Route: 062
     Dates: start: 20170415
  3. DEPRAX 100 (TRAZODONE HYDROCHLORIDE) [Suspect]
     Active Substance: TRAZODONE HYDROCHLORIDE
     Route: 048
     Dates: start: 20170415
  4. IMIDAPRIL [Concomitant]
     Active Substance: IMIDAPRIL
     Route: 048
     Dates: start: 20170415
  5. QUETIAPINA 50 [Suspect]
     Active Substance: QUETIAPINE
     Route: 048
     Dates: start: 20170415
  6. LORAZEPAM 1 MG [Concomitant]
     Active Substance: LORAZEPAM
     Route: 048
     Dates: start: 20170415

REACTIONS (1)
  - Rhabdomyolysis [Recovered/Resolved]

NARRATIVE: CASE EVENT DATE: 20170618
